FAERS Safety Report 10177305 (Version 1)
Quarter: 2014Q2

REPORT INFORMATION
  Report Type: Report from Study
  Country: IT (occurrence: IT)
  Receive Date: 20140516
  Receipt Date: 20140516
  Transmission Date: 20141212
  Serious: Yes (Other)
  Sender: FDA-Public Use
  Company Number: IT-GLAXOSMITHKLINE-Z0021827A

PATIENT
  Age: 62 Year
  Sex: Female
  Weight: 70 kg

DRUGS (3)
  1. DABRAFENIB [Suspect]
     Indication: MALIGNANT MELANOMA
     Dosage: 150MG TWICE PER DAY
     Route: 048
     Dates: start: 20120731
  2. PLACEBO [Suspect]
     Indication: MALIGNANT MELANOMA
     Route: 048
     Dates: start: 20120731
  3. CLEXANE [Concomitant]
     Indication: THROMBOSIS PROPHYLAXIS
     Dosage: 4000UNIT PER DAY
     Route: 058
     Dates: start: 20140204, end: 20140212

REACTIONS (1)
  - Breast cancer [Recovered/Resolved]
